FAERS Safety Report 20642618 (Version 2)
Quarter: 2022Q2

REPORT INFORMATION
  Report Type: Spontaneous
  Country: CA (occurrence: CA)
  Receive Date: 20220328
  Receipt Date: 20220413
  Transmission Date: 20220721
  Serious: Yes (Other)
  Sender: FDA-Public Use
  Company Number: CA-JNJFOC-20220352048

PATIENT
  Age: 47 Year
  Sex: Male

DRUGS (4)
  1. INVEGA SUSTENNA [Interacting]
     Active Substance: PALIPERIDONE PALMITATE
     Indication: Product used for unknown indication
     Route: 030
     Dates: start: 20220216
  2. INVEGA SUSTENNA [Interacting]
     Active Substance: PALIPERIDONE PALMITATE
  3. INVEGA SUSTENNA [Interacting]
     Active Substance: PALIPERIDONE PALMITATE
  4. METHADONE [Interacting]
     Active Substance: METHADONE HYDROCHLORIDE
     Route: 065

REACTIONS (11)
  - Cellulitis [Unknown]
  - Weight increased [Unknown]
  - Akathisia [Unknown]
  - Injection site pain [Unknown]
  - Pain in extremity [Unknown]
  - Hypokinesia [Unknown]
  - Feeling abnormal [Unknown]
  - Stupor [Unknown]
  - Off label use [Unknown]
  - Inappropriate schedule of product administration [Unknown]
  - Drug interaction [Unknown]
